FAERS Safety Report 12933507 (Version 1)
Quarter: 2016Q4

REPORT INFORMATION
  Report Type: Spontaneous
  Country: JP (occurrence: JP)
  Receive Date: 20161111
  Receipt Date: 20161111
  Transmission Date: 20170207
  Serious: Yes (Other)
  Sender: FDA-Public Use
  Company Number: JP-BAUSCH-BL-2016-027316

PATIENT
  Age: 85 Year
  Sex: Male

DRUGS (5)
  1. VISUDYNE [Suspect]
     Active Substance: VERTEPORFIN
     Indication: AGE-RELATED MACULAR DEGENERATION
     Route: 042
  2. LUCENTIS [Suspect]
     Active Substance: RANIBIZUMAB
     Indication: AGE-RELATED MACULAR DEGENERATION
     Route: 065
     Dates: start: 20130116
  3. MAQAID [Suspect]
     Active Substance: TRIAMCINOLONE ACETONIDE
     Route: 050
     Dates: start: 20130124
  4. LUCENTIS [Suspect]
     Active Substance: RANIBIZUMAB
     Route: 050
     Dates: start: 20130124
  5. MAQAID [Suspect]
     Active Substance: TRIAMCINOLONE ACETONIDE
     Indication: VENOUS OCCLUSION
     Route: 065

REACTIONS (2)
  - Cerebral infarction [Unknown]
  - Lung neoplasm malignant [Unknown]

NARRATIVE: CASE EVENT DATE: 20150716
